FAERS Safety Report 7774681-9 (Version None)
Quarter: 2011Q3

REPORT INFORMATION
  Report Type: 
  Country: None (occurrence: None)
  Receive Date: 20110923
  Receipt Date: 20110919
  Transmission Date: 20111222
  Serious: Yes (Hospitalization)
  Sender: FDA-Public Use
  Company Number: US-B.I. PHARMACEUTICALS,INC./RIDGEFIELD-2011-BP-22497BP

PATIENT
  Age: 73 Year
  Sex: Female

DRUGS (9)
  1. PRADAXA [Suspect]
     Dosage: 300 MG
     Route: 048
     Dates: start: 20110915
  2. ASPIRIN [Concomitant]
     Indication: PROPHYLAXIS
     Dosage: 325 MG
     Route: 048
  3. PROPRANOLOL [Concomitant]
     Indication: HYPERTENSION
     Route: 048
  4. LEVOTHYROXINE SODIUM [Concomitant]
     Indication: HYPOTHYROIDISM
     Route: 048
  5. LIPITOR [Concomitant]
     Indication: BLOOD CHOLESTEROL INCREASED
     Route: 048
  6. VITAMIN D [Concomitant]
     Indication: VITAMIN SUPPLEMENTATION
     Route: 048
  7. HYDROCHLOROTHIAZIDE [Concomitant]
     Indication: HYPERTENSION
     Route: 048
  8. PRADAXA [Suspect]
     Indication: ATRIAL FIBRILLATION
     Dosage: 300 MG
     Route: 048
     Dates: start: 20110601, end: 20110912
  9. PROZAC [Concomitant]
     Indication: DEPRESSION
     Route: 048

REACTIONS (1)
  - ATRIAL FIBRILLATION [None]
